FAERS Safety Report 24839150 (Version 1)
Quarter: 2025Q1

REPORT INFORMATION
  Report Type: Spontaneous
  Country: US (occurrence: US)
  Receive Date: 20250114
  Receipt Date: 20250114
  Transmission Date: 20250409
  Serious: No
  Sender: IBSA INSTITUT BIOCHIMIQUE
  Company Number: US-IBSA PHARMA INC.-2024IBS000513

PATIENT

DRUGS (4)
  1. TIROSINT-SOL [Suspect]
     Active Substance: LEVOTHYROXINE SODIUM
     Indication: Product used for unknown indication
     Dosage: 88 MICROGRAM, QD
  2. LOSARTAN [Concomitant]
     Active Substance: LOSARTAN
     Indication: Product used for unknown indication
  3. HYDROCHLOROTHIAZIDE [Concomitant]
     Active Substance: HYDROCHLOROTHIAZIDE
     Indication: Product used for unknown indication
  4. LEVOXINE [LEVOFLOXACIN HEMIHYDRATE] [Concomitant]
     Indication: Product used for unknown indication

REACTIONS (11)
  - Blood test abnormal [Unknown]
  - Abdominal distension [Unknown]
  - Swelling face [Unknown]
  - Weight increased [Unknown]
  - Brain fog [Unknown]
  - Palpitations [Unknown]
  - Thyroxine increased [Unknown]
  - Muscle spasms [Unknown]
  - Pyrexia [Unknown]
  - Alopecia [Unknown]
  - Diarrhoea [Unknown]
